FAERS Safety Report 14250199 (Version 16)
Quarter: 2025Q2

REPORT INFORMATION
  Report Type: Report from Study
  Country: IT (occurrence: IT)
  Receive Date: 20171205
  Receipt Date: 20250401
  Transmission Date: 20250716
  Serious: Yes (Hospitalization, Other)
  Sender: ROCHE
  Company Number: IT-ROCHE-1703806

PATIENT
  Age: 64 Year
  Sex: Female
  Weight: 88.0 kg

DRUGS (18)
  1. ADO-TRASTUZUMAB EMTANSINE [Suspect]
     Active Substance: ADO-TRASTUZUMAB EMTANSINE
     Indication: Breast cancer metastatic
     Dosage: FU CYCLE 36 ON 01/JUL/2016?37 CYCLE ON 29/JUL/2016?SUBSEQUENT DOSE ON : 09/JUN/2017?72TH THERAPY CYC
     Route: 042
     Dates: start: 20130509
  2. ADO-TRASTUZUMAB EMTANSINE [Suspect]
     Active Substance: ADO-TRASTUZUMAB EMTANSINE
     Route: 042
  3. ADO-TRASTUZUMAB EMTANSINE [Suspect]
     Active Substance: ADO-TRASTUZUMAB EMTANSINE
     Route: 065
     Dates: start: 20190626
  4. TRIMETON [Concomitant]
     Active Substance: CHLORPHENIRAMINE MALEATE
     Indication: Premedication
     Route: 030
     Dates: start: 20130509, end: 20130509
  5. IBUPROFEN [Concomitant]
     Active Substance: IBUPROFEN
     Indication: Cough
     Route: 048
     Dates: start: 20150115, end: 20150116
  6. OMEPRAZOLE [Concomitant]
     Active Substance: OMEPRAZOLE
     Indication: Dyspepsia
     Dates: start: 20140604, end: 20140609
  7. ZOLPIDEM [Concomitant]
     Active Substance: ZOLPIDEM TARTRATE
     Indication: Insomnia
     Dates: start: 20140604, end: 20140610
  8. DEXAMETHASONE [Concomitant]
     Active Substance: DEXAMETHASONE
     Indication: Nausea
     Dates: start: 20140605
  9. BISOPROLOL [Concomitant]
     Active Substance: BISOPROLOL
     Indication: Hypertension
  10. NYSTATIN [Concomitant]
     Active Substance: NYSTATIN
     Indication: Mucosal inflammation
     Dates: start: 20140606
  11. NYSTATIN [Concomitant]
     Active Substance: NYSTATIN
     Indication: Stomatitis
  12. BROTIZOLAM [Concomitant]
     Active Substance: BROTIZOLAM
     Indication: Insomnia
     Dates: start: 20140611, end: 20140612
  13. FLUCONAZOLE [Concomitant]
     Active Substance: FLUCONAZOLE
     Indication: Dyspepsia
     Dates: start: 20140612
  14. CEFIXIME [Concomitant]
     Active Substance: CEFIXIME
     Indication: Stomatitis
     Dates: start: 20151217
  15. DIHYDROCODEINE BITARTRATE [Concomitant]
     Active Substance: DIHYDROCODEINE BITARTRATE
     Dates: start: 20181207, end: 20190215
  16. LANSOPRAZOLE [Concomitant]
     Active Substance: LANSOPRAZOLE
     Dates: start: 20181207, end: 20190215
  17. MYCOSTATIN [Concomitant]
     Active Substance: NYSTATIN
  18. ASCORBIC ACID\FERRIC PYROPHOSPHATE [Concomitant]
     Active Substance: ASCORBIC ACID\FERRIC PYROPHOSPHATE
     Route: 048
     Dates: start: 20190319

REACTIONS (56)
  - Stomatitis [Recovered/Resolved]
  - Cough [Recovered/Resolved]
  - Varicella [Recovered/Resolved]
  - Cystitis [Recovered/Resolved]
  - Tooth abscess [Recovered/Resolved]
  - Oedema peripheral [Not Recovered/Not Resolved]
  - Pyrexia [Recovered/Resolved]
  - Dry skin [Unknown]
  - Pseudomonal sepsis [Recovered/Resolved]
  - Fungal infection [Not Recovered/Not Resolved]
  - Sopor [Recovered/Resolved]
  - Pyrexia [Recovered/Resolved]
  - Thrombocytopenia [Not Recovered/Not Resolved]
  - Epistaxis [Not Recovered/Not Resolved]
  - Stomatitis [Recovered/Resolved]
  - Somnolence [Not Recovered/Not Resolved]
  - Pain [Not Recovered/Not Resolved]
  - Mood altered [Unknown]
  - Asthenia [Recovered/Resolved]
  - Oedema peripheral [Unknown]
  - Blister [Unknown]
  - Mucosal inflammation [Recovered/Resolved]
  - Cystitis [Recovered/Resolved]
  - Haematoma [Unknown]
  - Skin warm [Unknown]
  - Thrombocytopenia [Not Recovered/Not Resolved]
  - Pollakiuria [Unknown]
  - Odynophagia [Unknown]
  - Cough [Not Recovered/Not Resolved]
  - Ejection fraction decreased [Recovered/Resolved]
  - Productive cough [Recovered/Resolved]
  - Vomiting [Recovered/Resolved]
  - Dysphagia [Recovered/Resolved]
  - Thrombocytopenia [Unknown]
  - Aphthous ulcer [Recovered/Resolved]
  - Gingival pain [Recovered/Resolved]
  - Asthenia [Recovered/Resolved]
  - Tongue dry [Not Recovered/Not Resolved]
  - Fall [Recovered/Resolved]
  - Injury [Recovered/Resolved]
  - Dysuria [Recovered/Resolved]
  - Strangury [Recovered/Resolved]
  - Slow speech [Recovered/Resolved]
  - Off label use [Unknown]
  - Hypoaesthesia [Not Recovered/Not Resolved]
  - Back pain [Recovered/Resolved]
  - Dermatitis [Not Recovered/Not Resolved]
  - Gingival bleeding [Not Recovered/Not Resolved]
  - Stomatitis [Not Recovered/Not Resolved]
  - Anaemia [Not Recovered/Not Resolved]
  - Vomiting [Recovered/Resolved]
  - Neutropenia [Recovered/Resolved]
  - Spinal pain [Not Recovered/Not Resolved]
  - Oedema peripheral [Not Recovered/Not Resolved]
  - Thrombocytopenia [Not Recovered/Not Resolved]
  - Arrhythmia [Not Recovered/Not Resolved]

NARRATIVE: CASE EVENT DATE: 20130513
